FAERS Safety Report 21674129 (Version 1)
Quarter: 2022Q4

REPORT INFORMATION
  Report Type: Spontaneous
  Country: US (occurrence: US)
  Receive Date: 20221202
  Receipt Date: 20221202
  Transmission Date: 20230113
  Serious: No
  Sender: FDA-Public Use
  Company Number: US-PFIZER INC-PV202200115041

PATIENT
  Age: 35 Year
  Sex: Female
  Weight: 58.957 kg

DRUGS (1)
  1. PAXLOVID [Suspect]
     Active Substance: NIRMATRELVIR\RITONAVIR
     Indication: COVID-19 treatment
     Dosage: UNK UNK, 2X/DAY (2 NIRMATRELVIR 150-MG (300MG) AND 1 RITONAVIR 100-MG TABLET TAKEN TOGETHER BID)

REACTIONS (1)
  - Therapeutic product effect incomplete [Unknown]
